FAERS Safety Report 10486945 (Version 1)
Quarter: 2014Q4

REPORT INFORMATION
  Report Type: Spontaneous
  Country: US (occurrence: US)
  Receive Date: 20141001
  Receipt Date: 20141001
  Transmission Date: 20150528
  Serious: No
  Sender: FDA-Public Use
  Company Number: US-009507513-1409USA004263

PATIENT
  Sex: Female

DRUGS (2)
  1. DR. SCHOLLS ULTRA THIN CORN REMOVERS [Suspect]
     Active Substance: SALICYLIC ACID
     Indication: HYPERKERATOSIS
     Dosage: UNK, UNKNOWN
     Route: 061
     Dates: start: 2012
  2. DR. SCHOLLS ULTRA THIN CORN REMOVERS [Suspect]
     Active Substance: SALICYLIC ACID
     Dosage: UNK, UNKNOWN
     Route: 061
     Dates: start: 20140630

REACTIONS (2)
  - Drug ineffective [Unknown]
  - Inappropriate schedule of drug administration [Unknown]

NARRATIVE: CASE EVENT DATE: 2012
